FAERS Safety Report 19598507 (Version 3)
Quarter: 2021Q3

REPORT INFORMATION
  Report Type: Report from Study
  Country: NG (occurrence: NG)
  Receive Date: 20210722
  Receipt Date: 20210823
  Transmission Date: 20211014
  Serious: Yes (Hospitalization, Other)
  Sender: FDA-Public Use
  Company Number: NVSC2021NG163829

PATIENT
  Age: 66 Year
  Sex: Male

DRUGS (1)
  1. UPERIO [Suspect]
     Active Substance: SACUBITRIL\VALSARTAN
     Indication: CARDIAC FAILURE
     Dosage: 50 MG, BID
     Route: 048
     Dates: start: 202105

REACTIONS (7)
  - Hypotension [Recovering/Resolving]
  - Pneumonia fungal [Unknown]
  - Cardiac disorder [Unknown]
  - Discomfort [Not Recovered/Not Resolved]
  - Oedema peripheral [Recovering/Resolving]
  - General physical health deterioration [Not Recovered/Not Resolved]
  - Pulmonary fibrosis [Unknown]

NARRATIVE: CASE EVENT DATE: 202107
